FAERS Safety Report 5886735-2 (Version None)
Quarter: 2008Q3

REPORT INFORMATION
  Report Type: 
  Country: None (occurrence: None)
  Receive Date: 20080917
  Receipt Date: 20080916
  Transmission Date: 20090109
  Serious: Yes (Death, Hospitalization)
  Sender: FDA-Public Use
  Company Number: PHEH1999US02769

PATIENT
  Sex: Male
  Weight: 63 kg

DRUGS (6)
  1. RAD 666 RAD+ [Suspect]
     Indication: HEART TRANSPLANT
     Dosage: 1.5 MG, BID
     Route: 048
     Dates: start: 19990602, end: 19990623
  2. RAD 666 RAD+ [Suspect]
     Dosage: CODE NOT BROKEN
     Route: 048
     Dates: start: 20000701, end: 20000719
  3. NEORAL [Suspect]
     Indication: HEART TRANSPLANT
     Dosage: 125 MG, BID
     Route: 048
     Dates: start: 19990603, end: 19990717
  4. PREDNISONE TAB [Concomitant]
  5. ACYCLOVIR [Concomitant]
  6. SANDIMMUNE [Suspect]
     Indication: HEART TRANSPLANT
     Dosage: 3 ML, CONT
     Route: 042
     Dates: start: 19990717, end: 19990824

REACTIONS (7)
  - ANAEMIA [None]
  - ASPERGILLOSIS [None]
  - GASTROINTESTINAL HAEMORRHAGE [None]
  - MENINGITIS [None]
  - SEPSIS [None]
  - THROMBOCYTOPENIA [None]
  - THROMBOTIC THROMBOCYTOPENIC PURPURA [None]
